FAERS Safety Report 17818152 (Version 1)
Quarter: 2020Q2

REPORT INFORMATION
  Report Type: Spontaneous
  Country: CH (occurrence: CH)
  Receive Date: 20200522
  Receipt Date: 20200522
  Transmission Date: 20200714
  Serious: Yes (Other)
  Sender: FDA-Public Use
  Company Number: CH-ELI_LILLY_AND_COMPANY-CH202005001740

PATIENT
  Sex: Male
  Weight: 80.5 kg

DRUGS (3)
  1. XENETIX [Concomitant]
     Active Substance: IOBITRIDOL
     Indication: COMPUTERISED TOMOGRAM
     Dosage: 135 ML, UNKNOWN
     Dates: start: 20200206
  2. CYRAMZA [Suspect]
     Active Substance: RAMUCIRUMAB
     Indication: BLADDER CANCER
     Dosage: UNK, CYCLICAL
     Route: 065
     Dates: start: 20191202
  3. DOCETAXEL. [Concomitant]
     Active Substance: DOCETAXEL
     Indication: BLADDER CANCER
     Dosage: UNK, CYCLICAL
     Route: 065
     Dates: start: 20191202

REACTIONS (4)
  - Off label use [Unknown]
  - Malignant neoplasm progression [Unknown]
  - Sepsis [Unknown]
  - Fatigue [Unknown]

NARRATIVE: CASE EVENT DATE: 20191202
